FAERS Safety Report 7520550-9 (Version None)
Quarter: 2011Q2

REPORT INFORMATION
  Report Type: 
  Country: None (occurrence: None)
  Receive Date: 20110602
  Receipt Date: 20110520
  Transmission Date: 20111010
  Serious: Yes (Death, Other)
  Sender: FDA-Public Use
  Company Number: US-AMGEN-USASP2011026595

PATIENT
  Sex: Female

DRUGS (2)
  1. SENSIPAR [Suspect]
     Indication: HYPERPARATHYROIDISM TERTIARY
     Dosage: UNK UNK, QOD
  2. ZEMPLAR [Concomitant]
     Dosage: UNK

REACTIONS (2)
  - DEATH [None]
  - GASTROINTESTINAL DISORDER [None]
